FAERS Safety Report 6346617-9 (Version None)
Quarter: 2009Q3

REPORT INFORMATION
  Report Type: 
  Country: None (occurrence: None)
  Receive Date: 20090909
  Receipt Date: 20090902
  Transmission Date: 20100115
  Serious: Yes (Hospitalization)
  Sender: FDA-Public Use
  Company Number: US-GILEAD-2009-0022562

PATIENT
  Sex: Male
  Weight: 74.91 kg

DRUGS (14)
  1. LETAIRIS [Suspect]
     Indication: PULMONARY ARTERIAL HYPERTENSION
     Route: 048
     Dates: start: 20090409
  2. WARFARIN SODIUM [Concomitant]
  3. LASIX [Concomitant]
  4. ATENOLOL [Concomitant]
  5. DIGOXIN [Concomitant]
  6. CATAPRES-TTS-1 [Concomitant]
  7. FLUTICASONE [Concomitant]
  8. POTASSIUM CHLORIDE [Concomitant]
  9. COSOPT [Concomitant]
  10. XALATAN [Concomitant]
  11. ALPHAGAN [Concomitant]
  12. METFORMIN HCL [Concomitant]
  13. MULTI-VITAMIN [Concomitant]
  14. COLCHICINE [Concomitant]

REACTIONS (1)
  - LIVER INJURY [None]
